FAERS Safety Report 8770121 (Version 1)
Quarter: 2012Q4

REPORT INFORMATION
  Report Type: 
  Country: US (occurrence: US)
  Receive Date: 20120904
  Receipt Date: 20120904
  Transmission Date: 20130627
  Serious: Yes (Other)
  Sender: FDA-Public Use
  Company Number: US-AMGEN-USASP2012055223

PATIENT
  Age: 51 Year
  Sex: Female

DRUGS (1)
  1. ENBREL [Suspect]
     Indication: RHEUMATOID ARTHRITIS
     Dosage: 50 UNK, qwk
     Route: 058
     Dates: start: 20011001

REACTIONS (11)
  - Thyroidectomy [Recovered/Resolved]
  - Muscle spasms [Not Recovered/Not Resolved]
  - Arthropod bite [Not Recovered/Not Resolved]
  - Blood cholesterol increased [Not Recovered/Not Resolved]
  - Hyperthyroidism [Not Recovered/Not Resolved]
  - Aphonia [Not Recovered/Not Resolved]
  - Fall [Recovered/Resolved]
  - Ligament sprain [Recovered/Resolved]
  - Back injury [Recovered/Resolved]
  - Spinal fracture [Not Recovered/Not Resolved]
  - Back pain [Not Recovered/Not Resolved]
